FAERS Safety Report 5477622-2 (Version None)
Quarter: 2007Q4

REPORT INFORMATION
  Report Type: 
  Country: None (occurrence: None)
  Receive Date: 20071002
  Receipt Date: 20070919
  Transmission Date: 20080405
  Serious: Yes (Death)
  Sender: FDA-Public Use
  Company Number: 2007US002306

PATIENT
  Age: 72 Year
  Sex: Female

DRUGS (5)
  1. AMBISOME [Suspect]
     Indication: SYSTEMIC CANDIDA
     Dosage: 250 MG, UID/QD, IV DRIP
     Route: 041
     Dates: start: 20070710, end: 20070723
  2. PREDONINE (PREDNISOLONE SODIUM SUCCINATE) [Concomitant]
  3. BENAMBAX (PENTAMIDINE) [Concomitant]
  4. MAXIPIME [Concomitant]
  5. CEFTRIAZONE (CEFTRIAXONE SODIUM) [Concomitant]

REACTIONS (1)
  - RENAL FAILURE [None]
